FAERS Safety Report 7212952-5 (Version None)
Quarter: 2010Q4

REPORT INFORMATION
  Report Type: 
  Country: None (occurrence: None)
  Receive Date: 20101227
  Receipt Date: 20101216
  Transmission Date: 20110411
  Serious: Yes (Hospitalization)
  Sender: FDA-Public Use
  Company Number: 2010SP003259

PATIENT
  Age: 72 Year
  Sex: Female
  Weight: 94 kg

DRUGS (12)
  1. ARFORMOTEROL [Suspect]
     Indication: CHRONIC OBSTRUCTIVE PULMONARY DISEASE
     Dosage: 15 UG; INHALATION, 15 UG; INHALATION
     Route: 055
     Dates: start: 20100525, end: 20101111
  2. ARFORMOTEROL [Suspect]
     Indication: CHRONIC OBSTRUCTIVE PULMONARY DISEASE
     Dosage: 15 UG; INHALATION, 15 UG; INHALATION
     Route: 055
     Dates: start: 20101117
  3. PIOGLITAZONE [Concomitant]
  4. DIOVAN [Concomitant]
  5. ALLEGRA [Concomitant]
  6. ACCOLATE [Concomitant]
  7. LEVOTHYROXINE [Concomitant]
  8. VYTORIN [Concomitant]
  9. SPIRIVA [Concomitant]
  10. QVAR 40 [Concomitant]
  11. ADVAIR DISKUS 100/50 [Concomitant]
  12. PROAIR HFA [Concomitant]

REACTIONS (5)
  - HEPATIC STEATOSIS [None]
  - HIATUS HERNIA [None]
  - NAUSEA [None]
  - PANCREATITIS ACUTE [None]
  - RENAL CYST [None]
